FAERS Safety Report 7227337-5 (Version None)
Quarter: 2011Q1

REPORT INFORMATION
  Report Type: 
  Country: None (occurrence: None)
  Receive Date: 20110114
  Receipt Date: 20110103
  Transmission Date: 20110831
  Serious: No
  Sender: FDA-Public Use
  Company Number: US-B.I. PHARMACEUTICALS,INC./RIDGEFIELD-2011-BP-00486BP

PATIENT
  Sex: Male
  Weight: 122 kg

DRUGS (7)
  1. ASPIRIN [Concomitant]
     Indication: PROPHYLAXIS
  2. AMLODIPINE [Concomitant]
     Indication: HYPERTENSION
  3. PRADAXA [Suspect]
     Indication: ATRIAL FIBRILLATION
     Dosage: 300 MG
     Route: 048
     Dates: start: 20101123
  4. SPIRONOLACTONE [Concomitant]
     Indication: MINERAL SUPPLEMENTATION
  5. UNSPECIFIED PRODUCT [Concomitant]
     Indication: FLUID RETENTION
     Dosage: AS NEEDED
  6. DIGOXIN [Concomitant]
     Indication: ATRIAL FIBRILLATION
  7. LOSARTAN [Concomitant]
     Indication: HYPERTENSION

REACTIONS (3)
  - FEELING HOT [None]
  - OEDEMA PERIPHERAL [None]
  - WEIGHT INCREASED [None]
